FAERS Safety Report 7380081-6 (Version None)
Quarter: 2011Q1

REPORT INFORMATION
  Report Type: 
  Country: None (occurrence: None)
  Receive Date: 20110329
  Receipt Date: 20100223
  Transmission Date: 20110831
  Serious: No
  Sender: FDA-Public Use
  Company Number: US-MYLANLABS-2009S1012036

PATIENT
  Age: 63 Year
  Sex: Female
  Weight: 71.67 kg

DRUGS (5)
  1. LISINOPRIL [Concomitant]
     Indication: HYPERTENSION
     Route: 048
     Dates: start: 19890101
  2. ESTRADIOL [Suspect]
     Indication: HORMONE REPLACEMENT THERAPY
     Dosage: CHANGED Q.W.
     Route: 062
     Dates: start: 20010101, end: 20010101
  3. ESTRADIOL [Suspect]
     Dosage: CHANGED Q.W.
     Route: 062
     Dates: start: 20090101
  4. LEVOTHYROXINE [Concomitant]
     Indication: HYPOTHYROIDISM
     Dosage: BEGAN USING IN THE 1990'S
     Route: 048
  5. ESTRADIOL [Suspect]
     Dosage: CHANGED Q.W.
     Route: 062
     Dates: start: 20090101

REACTIONS (2)
  - DRUG EFFECT DECREASED [None]
  - HOT FLUSH [None]
